FAERS Safety Report 15165092 (Version 5)
Quarter: 2018Q4

REPORT INFORMATION
  Report Type: Report from Study
  Country: BR (occurrence: BR)
  Receive Date: 20180719
  Receipt Date: 20181129
  Transmission Date: 20190204
  Serious: Yes (Life-Threatening, Hospitalization, Other)
  Sender: FDA-Public Use
  Company Number: BR-ASTRAZENECA-2018SE92031

PATIENT
  Age: 28769 Day
  Sex: Female

DRUGS (11)
  1. HYDROCHLOROTHIAZIDE. [Concomitant]
     Active Substance: HYDROCHLOROTHIAZIDE
     Indication: HYPERTENSION
     Route: 048
  2. CHLORTHALIDONE. [Concomitant]
     Active Substance: CHLORTHALIDONE
     Indication: HYPERTENSION
     Route: 048
     Dates: start: 20170831
  3. FLUOXETIN [Concomitant]
     Active Substance: FLUOXETINE HYDROCHLORIDE
     Indication: ANXIETY
     Route: 048
  4. ASA [Concomitant]
     Active Substance: ASPIRIN
     Indication: CORONARY ARTERY DISEASE
     Route: 048
  5. METFORMIN [Concomitant]
     Active Substance: METFORMIN HYDROCHLORIDE
     Indication: DIABETES MELLITUS
     Route: 048
  6. LOSARTAN. [Concomitant]
     Active Substance: LOSARTAN
     Indication: HYPERTENSION
     Route: 048
  7. TICAGRELOR. [Suspect]
     Active Substance: TICAGRELOR
     Indication: CARDIOVASCULAR EVENT PROPHYLAXIS
     Route: 048
     Dates: start: 20150814, end: 20160511
  8. ATORVASTATIN [Concomitant]
     Active Substance: ATORVASTATIN
     Indication: DYSLIPIDAEMIA
     Route: 048
  9. AMITRIPTYLINE [Concomitant]
     Active Substance: AMITRIPTYLINE
     Indication: ANXIETY
     Route: 048
  10. OMEPRAZOLE. [Concomitant]
     Active Substance: OMEPRAZOLE
     Indication: GASTRIC DISORDER
     Route: 048
  11. TICAGRELOR. [Suspect]
     Active Substance: TICAGRELOR
     Indication: CARDIOVASCULAR EVENT PROPHYLAXIS
     Route: 048
     Dates: start: 20160511, end: 20180716

REACTIONS (2)
  - Diverticulum intestinal [Recovering/Resolving]
  - Iron deficiency anaemia [Recovering/Resolving]

NARRATIVE: CASE EVENT DATE: 20180625
